FAERS Safety Report 8449272-7 (Version None)
Quarter: 2012Q2

REPORT INFORMATION
  Report Type: 
  Country: None (occurrence: None)
  Receive Date: 20120613
  Receipt Date: 20120613
  Transmission Date: 20120825
  Serious: Yes (Hospitalization)
  Sender: FDA-Public Use
  Company Number: None

PATIENT
  Age: 78 Year
  Sex: Male
  Weight: 96.5 kg

DRUGS (1)
  1. WARFARIN SODIUM [Suspect]
     Dates: start: 20120201

REACTIONS (6)
  - MALAISE [None]
  - INTERNATIONAL NORMALISED RATIO INCREASED [None]
  - HAEMORRHAGE [None]
  - POST PROCEDURAL COMPLICATION [None]
  - CARDIAC TAMPONADE [None]
  - PERICARDIAL HAEMORRHAGE [None]
